FAERS Safety Report 19514242 (Version 1)
Quarter: 2021Q3

REPORT INFORMATION
  Report Type: Spontaneous
  Country: US (occurrence: US)
  Receive Date: 20210709
  Receipt Date: 20210709
  Transmission Date: 20211014
  Serious: Yes (Other)
  Sender: FDA-Public Use
  Company Number: US-TEVA-2021-US-1929213

PATIENT
  Age: 61 Year
  Sex: Female

DRUGS (3)
  1. LANSOPRAZOLE. [Suspect]
     Active Substance: LANSOPRAZOLE
     Route: 065
  2. TEVA^S ESTROGEN [Concomitant]
     Route: 065
  3. PENICILLIN V K [Concomitant]
     Route: 065

REACTIONS (3)
  - Pain in extremity [Unknown]
  - Allergic reaction to excipient [Unknown]
  - Dyspepsia [Unknown]
